FAERS Safety Report 7859761-1 (Version None)
Quarter: 2011Q4

REPORT INFORMATION
  Report Type: 
  Country: None (occurrence: None)
  Receive Date: 20111026
  Receipt Date: 20111026
  Transmission Date: 20120403
  Serious: Yes (Other)
  Sender: FDA-Public Use
  Company Number: None

PATIENT
  Age: 32 Year
  Sex: Female
  Weight: 79.8331 kg

DRUGS (3)
  1. LISTERINE TOTAL CARE ZERO (ORAL CARE PRODUCTS) UNSPECIFIED [Suspect]
     Indication: PRODUCT USED FOR UNKNOWN INDICATION
     Dosage: USED ONCE. THE RECOMMENDED DOSAGE. ORAL
     Route: 048
     Dates: start: 20110907, end: 20110907
  2. PLAQUENIL [Concomitant]
  3. ZANTAC [Concomitant]

REACTIONS (5)
  - THERMAL BURN [None]
  - ORAL MUCOSAL EXFOLIATION [None]
  - ORAL PAIN [None]
  - HYPOAESTHESIA ORAL [None]
  - APPLICATION SITE BURN [None]
